FAERS Safety Report 6575877-4 (Version None)
Quarter: 2010Q1

REPORT INFORMATION
  Report Type: 
  Country: None (occurrence: None)
  Receive Date: 20100209
  Receipt Date: 20100121
  Transmission Date: 20100710
  Serious: No
  Sender: FDA-Public Use
  Company Number: US-BAUSCH-2010BL000378

PATIENT
  Age: 41 Year
  Sex: Female

DRUGS (3)
  1. SOOTHE XP [Suspect]
     Indication: DRY EYE
     Route: 047
     Dates: start: 20090601, end: 20091101
  2. ASPIRIN [Concomitant]
     Route: 048
  3. WOMEN'S ONE-A DAY [Concomitant]
     Indication: VITAMIN SUPPLEMENTATION

REACTIONS (4)
  - CATARACT [None]
  - MIGRAINE [None]
  - RETINAL DEGENERATION [None]
  - VISUAL ACUITY REDUCED [None]
